FAERS Safety Report 8993173 (Version 1)
Quarter: 2013Q1

REPORT INFORMATION
  Report Type: Spontaneous
  Country: ES (occurrence: ES)
  Receive Date: 20130102
  Receipt Date: 20130102
  Transmission Date: 20140127
  Serious: Yes (Hospitalization)
  Sender: FDA-Public Use
  Company Number: ES-ROCHE-1174549

PATIENT
  Age: 84 Year
  Sex: Female

DRUGS (5)
  1. AVASTIN [Suspect]
     Indication: RECTOSIGMOID CANCER
     Route: 042
     Dates: start: 20101018, end: 20110830
  2. XELODA [Suspect]
     Indication: RECTOSIGMOID CANCER
     Route: 048
     Dates: start: 20101018, end: 20110830
  3. AMERIDE [Concomitant]
     Indication: HYPERTENSION
     Route: 048
     Dates: start: 2007
  4. FORTECORTIN [Concomitant]
     Indication: VOMITING
     Route: 048
     Dates: start: 20110814, end: 20110830
  5. NEUPOGEN [Concomitant]
     Route: 058
     Dates: start: 20101101, end: 20110830

REACTIONS (1)
  - Acute lymphocytic leukaemia [Unknown]
